FAERS Safety Report 14519703 (Version 1)
Quarter: 2018Q1

REPORT INFORMATION
  Report Type: Spontaneous
  Country: GB (occurrence: GB)
  Receive Date: 20180210
  Receipt Date: 20180210
  Transmission Date: 20180509
  Serious: Yes (Disabling)
  Sender: FDA-Public Use
  Company Number: None

PATIENT
  Age: 74 Year
  Sex: Male
  Weight: 80 kg

DRUGS (4)
  1. BENDOMETHIZIDE [Concomitant]
  2. AMLOPIDIEIN [Concomitant]
  3. RAMAPRIL [Concomitant]
  4. AMOXICILLIN. [Suspect]
     Active Substance: AMOXICILLIN
     Indication: LOWER RESPIRATORY TRACT INFECTION
     Dosage: ?          QUANTITY:2 TABLET(S);?
     Route: 048
     Dates: start: 20171225, end: 20171230

REACTIONS (2)
  - Pain in extremity [None]
  - Toothache [None]

NARRATIVE: CASE EVENT DATE: 20171228
